FAERS Safety Report 4601670-5 (Version None)
Quarter: 2005Q1

REPORT INFORMATION
  Report Type: 
  Country: None (occurrence: None)
  Receive Date: 20050131
  Receipt Date: 20041102
  Transmission Date: 20050727
  Serious: No
  Sender: FDA-Public Use
  Company Number: 200418087US

PATIENT
  Age: 60 Year
  Sex: Female

DRUGS (1)
  1. KETEK [Suspect]
     Indication: PNEUMONIA
     Dosage: 800 MG QD PO
     Route: 048

REACTIONS (1)
  - ABNORMAL DREAMS [None]
